FAERS Safety Report 8904486 (Version 4)
Quarter: 2013Q2

REPORT INFORMATION
  Report Type: Spontaneous
  Country: US (occurrence: US)
  Receive Date: 20121113
  Receipt Date: 20130524
  Transmission Date: 20140414
  Serious: No
  Sender: FDA-Public Use
  Company Number: US-009507513-1210USA014197

PATIENT
  Age: 55 Year
  Sex: Female
  Weight: 81.2 kg

DRUGS (18)
  1. PEG-INTRON [Suspect]
     Indication: HEPATITIS C
     Dosage: 150 MICROGRAM, UNK
     Route: 058
     Dates: start: 20121014, end: 20130111
  2. PEG-INTRON [Suspect]
     Dosage: 120 MCG QW
     Route: 058
     Dates: start: 201301, end: 20130222
  3. PEG-INTRON [Suspect]
     Dosage: 150 MCG, QW
     Route: 058
     Dates: start: 201302, end: 201304
  4. PEG-INTRON [Suspect]
     Dosage: 0.4 ON INJECTION
     Route: 058
     Dates: start: 20130405, end: 20130428
  5. REBETOL [Suspect]
     Indication: HEPATITIS C
     Dosage: 600 MG, BID
     Route: 048
     Dates: start: 20121014, end: 20121211
  6. REBETOL [Suspect]
     Dosage: 400 MG, BID
     Route: 048
     Dates: start: 201212, end: 20130428
  7. VICTRELIS [Suspect]
     Indication: HEPATITIS C
     Dosage: 800 MG, Q8H
     Route: 048
     Dates: start: 20121014, end: 20130428
  8. LISINOPRIL [Concomitant]
     Route: 048
  9. HYDROCHLOROTHIAZIDE (+) LISINOPRIL [Concomitant]
     Dosage: 20/12.5 MG, UNK
  10. OMEGA-3 MARINE TRIGLYCERIDES [Concomitant]
     Dosage: UNK, QD
  11. CALCIUM (UNSPECIFIED) [Concomitant]
  12. FOLIC ACID [Concomitant]
     Dosage: UNK, QD
  13. VITAMIN E [Concomitant]
     Dosage: UNK, QD
  14. COD LIVER OIL [Concomitant]
  15. VITAMIN D (UNSPECIFIED) [Concomitant]
     Dosage: UNK, QD
  16. ZINC (UNSPECIFIED) [Concomitant]
  17. MAGNESIUM (UNSPECIFIED) [Concomitant]
  18. IRON (UNSPECIFIED) [Concomitant]

REACTIONS (21)
  - Haemolytic anaemia [Recovering/Resolving]
  - Mood swings [Recovered/Resolved]
  - Headache [Unknown]
  - Arthralgia [Unknown]
  - Nausea [Unknown]
  - Dehydration [Unknown]
  - Blood pressure decreased [Unknown]
  - Gastrooesophageal reflux disease [Unknown]
  - Pyrexia [Recovered/Resolved]
  - Hepatic steatosis [Unknown]
  - Leukopenia [Unknown]
  - Fibromyalgia [Unknown]
  - Depression [Unknown]
  - Dyspnoea [Unknown]
  - Dizziness [Recovering/Resolving]
  - Fatigue [Unknown]
  - Weight decreased [Unknown]
  - Diarrhoea [Recovered/Resolved]
  - Blood potassium decreased [Unknown]
  - Thrombocytopenia [Unknown]
  - Poor quality sleep [Unknown]
